FAERS Safety Report 20490145 (Version 2)
Quarter: 2022Q1

REPORT INFORMATION
  Report Type: Spontaneous
  Country: CN (occurrence: None)
  Receive Date: 20220218
  Receipt Date: 20220223
  Transmission Date: 20220423
  Serious: Yes (Hospitalization)
  Sender: FDA-Public Use
  Company Number: 2022A070848

PATIENT
  Age: 52 Year
  Sex: Female

DRUGS (2)
  1. DAPAGLIFLOZIN [Suspect]
     Active Substance: DAPAGLIFLOZIN
     Indication: Diabetes mellitus
     Route: 048
  2. ACARBOSE [Concomitant]
     Active Substance: ACARBOSE

REACTIONS (5)
  - Hyperpyrexia [Recovered/Resolved]
  - Urine ketone body present [Recovered/Resolved]
  - Back pain [Recovered/Resolved]
  - Proteinuria [Unknown]
  - Pyelonephritis [Unknown]
